FAERS Safety Report 4483496-9 (Version None)
Quarter: 2004Q4

REPORT INFORMATION
  Report Type: 
  Country: None (occurrence: None)
  Receive Date: 20041019
  Receipt Date: 20041019
  Transmission Date: 20050328
  Serious: Yes (Life-Threatening)
  Sender: FDA-Public Use
  Company Number: None

PATIENT
  Age: 54 Year
  Sex: Male
  Weight: 193 kg

DRUGS (1)
  1. ATIVAN [Suspect]
     Indication: CONVULSION
     Dosage: 4MG    SINGLE DOSE     INTRAVENOUS
     Route: 042
     Dates: start: 20040810, end: 20040810

REACTIONS (2)
  - COMA [None]
  - SOMNOLENCE [None]
